FAERS Safety Report 22066520 (Version 1)
Quarter: 2023Q1

REPORT INFORMATION
  Report Type: Spontaneous
  Country: US (occurrence: None)
  Receive Date: 20230306
  Receipt Date: 20230306
  Transmission Date: 20230417
  Serious: Yes (unspecified)
  Sender: FDA-Public Use
  Company Number: None

PATIENT
  Age: 43 Year
  Sex: Male
  Weight: 47.25 kg

DRUGS (5)
  1. IMATINIB MESYLATE [Suspect]
     Active Substance: IMATINIB MESYLATE
     Indication: Neurofibroma
     Dosage: FREQUENCY : DAILY;?
     Route: 048
     Dates: start: 20221010
  2. METOPROLOL [Concomitant]
     Active Substance: METOPROLOL
  3. LYRICA [Concomitant]
     Active Substance: PREGABALIN
  4. VITAMIN B12 [Concomitant]
     Active Substance: CYANOCOBALAMIN
     Dates: start: 20230115
  5. INTEGRA TABS [Concomitant]
     Dates: start: 20230115

REACTIONS (2)
  - Chromaturia [None]
  - Liver disorder [None]

NARRATIVE: CASE EVENT DATE: 20230306
